FAERS Safety Report 16688534 (Version 1)
Quarter: 2019Q3

REPORT INFORMATION
  Report Type: Spontaneous
  Country: US (occurrence: US)
  Receive Date: 20190625
  Receipt Date: 20190625
  Transmission Date: 20191004
  Serious: No
  Sender: FDA-Public Use
  Company Number: None

PATIENT
  Age: 68 Year
  Sex: Female

DRUGS (1)
  1. OTEZLA [Suspect]
     Active Substance: APREMILAST
     Indication: PSORIASIS
     Dosage: AS DIRECTED
     Route: 048
     Dates: start: 201906

REACTIONS (6)
  - Nausea [None]
  - Diarrhoea [None]
  - Blood pressure decreased [None]
  - Dizziness [None]
  - Therapy cessation [None]
  - Headache [None]
